FAERS Safety Report 7294915-7 (Version None)
Quarter: 2011Q1

REPORT INFORMATION
  Report Type: 
  Country: None (occurrence: None)
  Receive Date: 20110216
  Receipt Date: 20110203
  Transmission Date: 20110831
  Serious: Yes (Other)
  Sender: FDA-Public Use
  Company Number: US-BAYER-2011-012167

PATIENT
  Sex: Female

DRUGS (1)
  1. MIRENA [Suspect]
     Indication: CONTRACEPTION
     Dosage: 20 ?G/D, CONT
     Route: 015
     Dates: start: 20060901

REACTIONS (5)
  - WEIGHT INCREASED [None]
  - CONSTIPATION [None]
  - STOMACH MASS [None]
  - DEHYDRATION [None]
  - ABDOMINAL PAIN [None]
